FAERS Safety Report 4384274-1 (Version None)
Quarter: 2004Q2

REPORT INFORMATION
  Report Type: 
  Country: None (occurrence: None)
  Receive Date: 20040618
  Receipt Date: 20040607
  Transmission Date: 20050107
  Serious: Yes (Other)
  Sender: FDA-Public Use
  Company Number: GBWYE706516APR04

PATIENT
  Age: 41 Year
  Sex: Female

DRUGS (1)
  1. LEVONORGESTREL [Suspect]
     Dosage: ORAL
     Route: 048
     Dates: start: 20020401

REACTIONS (2)
  - LIVER FUNCTION TEST ABNORMAL [None]
  - PHARYNGOLARYNGEAL PAIN [None]
